FAERS Safety Report 9727642 (Version 3)
Quarter: 2014Q1

REPORT INFORMATION
  Report Type: Spontaneous
  Country: GB (occurrence: GB)
  Receive Date: 20131203
  Receipt Date: 20140127
  Transmission Date: 20141002
  Serious: Yes (Hospitalization)
  Sender: FDA-Public Use
  Company Number: PHFR2013GB006365

PATIENT
  Age: 55 Year
  Sex: Male

DRUGS (6)
  1. CLOZARIL [Suspect]
     Indication: SCHIZOPHRENIA
     Dosage: UNK UKN, UNK
     Route: 048
     Dates: start: 20131028
  2. CLOZARIL [Suspect]
     Dosage: 100 MG, BID
     Route: 048
  3. THIAMINE [Concomitant]
     Dosage: 100 MG, BID
     Route: 048
  4. VITAMIN B [Concomitant]
     Dosage: 100 MG, BID
     Route: 048
  5. OMEPRAZOLE [Concomitant]
     Indication: DYSPEPSIA
     Dosage: 20 MG, UNK
     Route: 048
  6. FLUOXETINE [Concomitant]
     Indication: DEPRESSION

REACTIONS (9)
  - Dyspnoea [Recovering/Resolving]
  - Lethargy [Recovering/Resolving]
  - Hyperpyrexia [Unknown]
  - Body temperature increased [Recovering/Resolving]
  - Lower respiratory tract infection [Recovered/Resolved]
  - Pneumonia [Recovered/Resolved]
  - Malaise [Unknown]
  - Influenza like illness [Unknown]
  - Somnolence [Recovering/Resolving]
